FAERS Safety Report 4580021-9 (Version None)
Quarter: 2005Q1

REPORT INFORMATION
  Report Type: 
  Country: None (occurrence: None)
  Receive Date: 20050210
  Receipt Date: 20050128
  Transmission Date: 20050727
  Serious: Yes (Hospitalization)
  Sender: FDA-Public Use
  Company Number: 2004UW22139

PATIENT
  Sex: Female

DRUGS (1)
  1. SEROQUEL [Suspect]
     Dosage: 800 MG DAILY PO
     Route: 048

REACTIONS (1)
  - OVERDOSE [None]
